FAERS Safety Report 21395318 (Version 1)
Quarter: 2022Q3

REPORT INFORMATION
  Report Type: Spontaneous
  Country: JP (occurrence: JP)
  Receive Date: 20220930
  Receipt Date: 20220930
  Transmission Date: 20221027
  Serious: Yes (Other)
  Sender: FDA-Public Use
  Company Number: JP-STRIDES ARCOLAB LIMITED-2022SP012516

PATIENT

DRUGS (3)
  1. DEXAMETHASONE [Suspect]
     Active Substance: DEXAMETHASONE
     Indication: Haemophagocytic lymphohistiocytosis
     Dosage: 10 MILLIGRAM/SQ. METER PER DAY, ON WEEKS 1-2; SCHEDULED TO BE FOLLOWED BY 5 MG/M2/DAY FOR WEEKS 3-4,
     Route: 065
  2. CYCLOSPORINE [Suspect]
     Active Substance: CYCLOSPORINE
     Indication: Haemophagocytic lymphohistiocytosis
     Dosage: UNK, 2 TIMES A WEEK, BODY WEIGHT BASED TWICE A WEEK DOSAGE FOR A TARGET TROUGH LEVEL OF 200 MICROGRA
     Route: 065
  3. ETOPOSIDE [Suspect]
     Active Substance: ETOPOSIDE
     Indication: Haemophagocytic lymphohistiocytosis
     Dosage: 150 MILLIGRAM/SQ. METER, 2 TIMES A WEEK, ON WEEKS 1-2; SCHEDULED TO BE FOLLOWED BY 150 MG/M2 ONCE A
     Route: 042

REACTIONS (2)
  - Lung disorder [Unknown]
  - Escherichia bacteraemia [Unknown]
